FAERS Safety Report 25318885 (Version 1)
Quarter: 2025Q2

REPORT INFORMATION
  Report Type: Other
  Country: US (occurrence: US)
  Receive Date: 20250515
  Receipt Date: 20250515
  Transmission Date: 20250717
  Serious: Yes (Hospitalization, Other)
  Sender: PL DEVELOPMENTS
  Company Number: US-P+L Developments of Newyork Corporation-2176784

PATIENT
  Age: 74 Year
  Sex: Female

DRUGS (1)
  1. NAPROXEN SODIUM [Suspect]
     Active Substance: NAPROXEN SODIUM
     Indication: Fibromyalgia

REACTIONS (6)
  - Melaena [Unknown]
  - Fistula [Unknown]
  - Anastomotic ulcer [Unknown]
  - Overdose [Unknown]
  - Gastrointestinal fistula [Unknown]
  - Drug abuse [Unknown]
